FAERS Safety Report 9207773 (Version 1)
Quarter: 2013Q2

REPORT INFORMATION
  Report Type: Report from Study
  Country: US (occurrence: US)
  Receive Date: 20130403
  Receipt Date: 20130403
  Transmission Date: 20140414
  Serious: Yes (Hospitalization, Disabling)
  Sender: FDA-Public Use
  Company Number: US-ROCHE-772030

PATIENT
  Age: 83 Year
  Sex: Female
  Weight: 62.6 kg

DRUGS (9)
  1. VISMODEGIB [Suspect]
     Indication: BASAL CELL CARCINOMA
     Route: 048
     Dates: start: 20091130, end: 20100103
  2. PLAVIX [Concomitant]
     Indication: CEREBROVASCULAR ACCIDENT PROPHYLAXIS
     Route: 065
     Dates: start: 2004, end: 20100127
  3. LANOXIN [Concomitant]
     Indication: ATRIAL FIBRILLATION
     Route: 065
  4. ADVAIR DISKUS [Concomitant]
     Indication: CHRONIC OBSTRUCTIVE PULMONARY DISEASE
     Route: 065
     Dates: start: 2002, end: 20100204
  5. ADVAIR DISKUS [Concomitant]
     Indication: ASTHMA
  6. LASIX [Concomitant]
     Indication: OEDEMA PERIPHERAL
     Route: 065
     Dates: start: 1997, end: 20100127
  7. THEOPHYLLINE [Concomitant]
     Indication: CHRONIC OBSTRUCTIVE PULMONARY DISEASE
     Route: 065
     Dates: start: 1999, end: 20100127
  8. DETROL [Concomitant]
     Route: 065
     Dates: start: 2007, end: 20100127
  9. NUTRITIONAL SUPPLEMENTS [Concomitant]
     Route: 065
     Dates: start: 20091229, end: 20100105

REACTIONS (1)
  - Cholestasis [Recovered/Resolved]
